FAERS Safety Report 4834698-0 (Version None)
Quarter: 2005Q4

REPORT INFORMATION
  Report Type: 
  Country: None (occurrence: None)
  Receive Date: 20051122
  Receipt Date: 20050627
  Transmission Date: 20060501
  Serious: No
  Sender: FDA-Public Use
  Company Number: US-BRISTOL-MYERS SQUIBB COMPANY-13016993

PATIENT
  Age: 79 Year
  Sex: Male
  Weight: 70 kg

DRUGS (11)
  1. PRAVACHOL [Suspect]
     Indication: BLOOD CHOLESTEROL INCREASED
  2. NORVASC [Concomitant]
  3. TOPROL-XL [Concomitant]
  4. DIAMOX [Concomitant]
  5. TIMOLOL MALEATE [Concomitant]
  6. TRAVATAN [Concomitant]
  7. MULTIVITAMIN WITH MINERALS [Concomitant]
  8. GLUCOSAMINE [Concomitant]
  9. CHONDROITIN [Concomitant]
  10. ASPIRIN [Concomitant]
  11. LUTEIN [Concomitant]

REACTIONS (2)
  - FEELING ABNORMAL [None]
  - VISION BLURRED [None]
